FAERS Safety Report 6181725-7 (Version None)
Quarter: 2009Q2

REPORT INFORMATION
  Report Type: 
  Country: None (occurrence: None)
  Receive Date: 20090422
  Receipt Date: 20090409
  Transmission Date: 20091009
  Serious: Yes (Death, Other)
  Sender: FDA-Public Use
  Company Number: THYM-1000997

PATIENT
  Sex: Male

DRUGS (1)
  1. THYMOGLOBULIN [Suspect]
     Indication: APLASTIC ANAEMIA
     Dosage: 3.75 MG/KG QD, INTRAVENOUS
     Route: 042

REACTIONS (7)
  - APLASTIC ANAEMIA [None]
  - DIARRHOEA [None]
  - DISEASE PROGRESSION [None]
  - HAEMORRHAGIC DIATHESIS [None]
  - INFECTION [None]
  - PNEUMONIA [None]
  - SEPSIS [None]
